FAERS Safety Report 23723517 (Version 5)
Quarter: 2024Q3

REPORT INFORMATION
  Report Type: Spontaneous
  Country: US (occurrence: US)
  Receive Date: 20240409
  Receipt Date: 20240805
  Transmission Date: 20241017
  Serious: No
  Sender: SANOFI AVENTIS
  Company Number: US-SA-SAC20240404000182

PATIENT
  Age: 16 Year
  Sex: Male
  Weight: 44.9 kg

DRUGS (18)
  1. DUPIXENT [Suspect]
     Active Substance: DUPILUMAB
     Indication: Dermatitis atopic
     Dosage: 400 MG, 1X
     Route: 058
     Dates: start: 20240322, end: 20240322
  2. DUPIXENT [Suspect]
     Active Substance: DUPILUMAB
     Dosage: 200 MG, QOW
     Route: 058
     Dates: start: 202404, end: 2024
  3. VTAMA [Suspect]
     Active Substance: TAPINAROF
     Dosage: UNK
  4. DEVICE [Concomitant]
     Active Substance: DEVICE
     Indication: Dermatitis atopic
     Dosage: UNK, BID; EPICERAM APPLY ALL OVER THE BODY
     Route: 061
     Dates: start: 20240226
  5. HYDROCORTISONE [Concomitant]
     Active Substance: HYDROCORTISONE\HYDROCORTISONE ACETATE
     Indication: Rash pruritic
  6. HYDROCORTISONE [Concomitant]
     Active Substance: HYDROCORTISONE\HYDROCORTISONE ACETATE
     Indication: Dermatitis atopic
  7. OPZELURA [Concomitant]
     Active Substance: RUXOLITINIB PHOSPHATE
     Indication: Rash pruritic
     Dosage: UNK UNK, BID
     Route: 061
  8. OPZELURA [Concomitant]
     Active Substance: RUXOLITINIB PHOSPHATE
     Indication: Dermatitis atopic
  9. VITAMIN D3 [Concomitant]
     Active Substance: CHOLECALCIFEROL
     Dosage: UNK
     Route: 048
  10. FOLIC ACID [Concomitant]
     Active Substance: FOLIC ACID
     Dosage: UNK
  11. MOMETASONE [Concomitant]
     Active Substance: MOMETASONE
     Indication: Pruritus
     Dosage: UNK
  12. HYDROXYZINE HYDROCHLORIDE [Concomitant]
     Active Substance: HYDROXYZINE HYDROCHLORIDE
     Dosage: UNK
  13. TACROLIMUS [Concomitant]
     Active Substance: TACROLIMUS
     Indication: Pruritus
     Dosage: UNK UNK, QD
     Route: 061
     Dates: start: 2024
  14. TACROLIMUS [Concomitant]
     Active Substance: TACROLIMUS
     Indication: Rash
  15. TACROLIMUS [Concomitant]
     Active Substance: TACROLIMUS
     Indication: Dermatitis atopic
  16. TRIAMCINOLONE ACETONIDE [Concomitant]
     Active Substance: TRIAMCINOLONE ACETONIDE
     Indication: Dermatitis atopic
     Dosage: UNK UNK, BID
     Route: 061
     Dates: start: 2024
  17. TRIAMCINOLONE ACETONIDE [Concomitant]
     Active Substance: TRIAMCINOLONE ACETONIDE
     Indication: Rash
  18. TRIAMCINOLONE ACETONIDE [Concomitant]
     Active Substance: TRIAMCINOLONE ACETONIDE
     Indication: Pruritus

REACTIONS (9)
  - Paraesthesia [Recovered/Resolved]
  - Rash erythematous [Unknown]
  - Lichenification [Unknown]
  - Condition aggravated [Unknown]
  - Dry skin [Unknown]
  - Skin exfoliation [Unknown]
  - Dermatitis atopic [Not Recovered/Not Resolved]
  - Injection site pain [Unknown]
  - Eczema [Unknown]

NARRATIVE: CASE EVENT DATE: 20240101
